FAERS Safety Report 9496611 (Version 3)
Quarter: 2013Q4

REPORT INFORMATION
  Report Type: Spontaneous
  Country: CA (occurrence: CA)
  Receive Date: 20130904
  Receipt Date: 20131015
  Transmission Date: 20140711
  Serious: No
  Sender: FDA-Public Use
  Company Number: CA-ASTELLAS-2013US007393

PATIENT
  Age: 71 Year
  Sex: Male

DRUGS (3)
  1. ADVAGRAF [Suspect]
     Indication: RENAL TRANSPLANT
     Dosage: UNK
     Route: 048
     Dates: start: 20130524, end: 20130530
  2. ADVAGRAF [Suspect]
     Dosage: 6 CAPSULES OF 3 MG, DAILY
     Route: 048
     Dates: start: 20130531, end: 20130607
  3. ADVAGRAF [Suspect]
     Dosage: 3 MG, UID/QD
     Route: 048
     Dates: start: 20130608

REACTIONS (2)
  - Drug dispensing error [Unknown]
  - Incorrect dose administered [Recovered/Resolved]
